FAERS Safety Report 19520960 (Version 6)
Quarter: 2025Q3

REPORT INFORMATION
  Report Type: Spontaneous
  Country: EU (occurrence: EU)
  Receive Date: 20210712
  Receipt Date: 20250730
  Transmission Date: 20251021
  Serious: Yes (Hospitalization, Other)
  Sender: MYLAN
  Company Number: EU-ROMPHARMP-202101051

PATIENT
  Age: 63 Year
  Sex: Female

DRUGS (10)
  1. METHOTREXATE [Interacting]
     Active Substance: METHOTREXATE
     Indication: Adrenocortical steroid therapy
  2. METHOTREXATE [Interacting]
     Active Substance: METHOTREXATE
     Indication: Dermatomyositis
  3. MYCOPHENOLATE MOFETIL [Suspect]
     Active Substance: MYCOPHENOLATE MOFETIL
     Indication: Dermatomyositis
     Dosage: 2.5 GRAM, QD
  4. MYCOPHENOLATE MOFETIL [Suspect]
     Active Substance: MYCOPHENOLATE MOFETIL
     Dosage: 2 GRAM, QD
  5. PANTOPRAZOLE [Interacting]
     Active Substance: PANTOPRAZOLE
     Indication: Adrenocortical steroid therapy
  6. PANTOPRAZOLE [Interacting]
     Active Substance: PANTOPRAZOLE
     Indication: Prophylaxis
  7. METHYLPREDNISOLONE [Concomitant]
     Active Substance: METHYLPREDNISOLONE
     Indication: Dermatomyositis
  8. METHYLPREDNISOLONE [Concomitant]
     Active Substance: METHYLPREDNISOLONE
  9. FOLIC ACID [Concomitant]
     Active Substance: FOLIC ACID
     Indication: Vitamin supplementation
  10. FILGRASTIM [Concomitant]
     Active Substance: FILGRASTIM
     Indication: Product used for unknown indication

REACTIONS (8)
  - Nephrotic syndrome [Recovered/Resolved]
  - Pancytopenia [Unknown]
  - Drug interaction [Recovered/Resolved]
  - Diarrhoea [Recovered/Resolved]
  - Muscle spasms [Recovered/Resolved]
  - Hyponatraemia [Recovered/Resolved]
  - Toxicity to various agents [Recovered/Resolved]
  - Product use in unapproved indication [Unknown]
